FAERS Safety Report 11735326 (Version 2)
Quarter: 2015Q4

REPORT INFORMATION
  Report Type: Report from Study
  Country: NL (occurrence: NL)
  Receive Date: 20151113
  Receipt Date: 20151120
  Transmission Date: 20160304
  Serious: Yes (Death)
  Sender: FDA-Public Use
  Company Number: PHHY2015NL148035

PATIENT
  Sex: Female

DRUGS (1)
  1. ZOMETA [Suspect]
     Active Substance: ZOLEDRONIC ACID
     Indication: BREAST CANCER METASTATIC
     Dosage: 4 MG/100ML ONCE IN EVERY 12 WEEKS
     Route: 042

REACTIONS (3)
  - Pulmonary oedema [Fatal]
  - Breast cancer metastatic [Fatal]
  - Inappropriate schedule of drug administration [Unknown]
